FAERS Safety Report 9332979 (Version 1)
Quarter: 2013Q2

REPORT INFORMATION
  Report Type: Spontaneous
  Country: TR (occurrence: TR)
  Receive Date: 20130606
  Receipt Date: 20130606
  Transmission Date: 20140414
  Serious: Yes (Hospitalization)
  Sender: FDA-Public Use
  Company Number: TR-ASTELLAS-2013EU004700

PATIENT
  Age: 48 Year
  Sex: Male

DRUGS (4)
  1. TACROLIMUS SYSTEMIC [Suspect]
     Indication: RENAL TRANSPLANT
     Dosage: 0.15 MG/KG, UID/QD
     Route: 065
  2. ANTITHYMOCYTE IMMUNOGLOBULIN [Suspect]
     Indication: RENAL TRANSPLANT
     Dosage: 2.5 MG/KG, UID/QD
     Route: 065
  3. MYCOPHENOLATE MOFETIL [Suspect]
     Indication: RENAL TRANSPLANT
     Dosage: 2 G, UID/QD
     Route: 065
  4. PREDNISOLON /00016201/ [Suspect]
     Indication: RENAL TRANSPLANT
     Dosage: 20 MG, UID/QD
     Route: 065

REACTIONS (4)
  - Blood creatinine increased [Recovering/Resolving]
  - Hydronephrosis [Recovering/Resolving]
  - Urethral obstruction [Recovering/Resolving]
  - Polyomavirus-associated nephropathy [Recovering/Resolving]
